FAERS Safety Report 6112160-5 (Version None)
Quarter: 2009Q1

REPORT INFORMATION
  Report Type: 
  Country: None (occurrence: None)
  Receive Date: 20090310
  Receipt Date: 20090228
  Transmission Date: 20090719
  Serious: Yes (Other)
  Sender: FDA-Public Use
  Company Number: CHPA2009US05758

PATIENT
  Age: 70 Year
  Sex: Female
  Weight: 94.3 kg

DRUGS (10)
  1. VOLTAREN [Suspect]
     Indication: OSTEOARTHRITIS
     Dosage: UNK, UNMEASURED, ABOUT 1 INCH ONCE A DAY OFF AND ON WITH FINGERS TO HER LEFT KNEE, TOPICAL; UNK MEAS
     Route: 061
     Dates: start: 20081211, end: 20090201
  2. VOLTAREN [Suspect]
     Indication: OSTEOARTHRITIS
     Dosage: UNK, UNMEASURED, ABOUT 1 INCH ONCE A DAY OFF AND ON WITH FINGERS TO HER LEFT KNEE, TOPICAL; UNK MEAS
     Route: 061
     Dates: start: 20090201
  3. OXYCONTIN [Concomitant]
  4. PROMETHAZINE [Concomitant]
  5. SINGULAIR [Concomitant]
  6. DILTIAZEM [Concomitant]
  7. TEKTURNA [Concomitant]
  8. HYZAAR [Concomitant]
  9. PRAVASTATIN [Concomitant]
  10. COUMADIN [Concomitant]

REACTIONS (7)
  - APPLICATION SITE REACTION [None]
  - ARTHRALGIA [None]
  - BACK PAIN [None]
  - DRUG ADMINISTERED AT INAPPROPRIATE SITE [None]
  - KNEE ARTHROPLASTY [None]
  - MUSCLE CONTRACTURE [None]
  - WRONG TECHNIQUE IN DRUG USAGE PROCESS [None]
